FAERS Safety Report 17646361 (Version 1)
Quarter: 2020Q2

REPORT INFORMATION
  Report Type: Spontaneous
  Country: US (occurrence: US)
  Receive Date: 20200408
  Receipt Date: 20200408
  Transmission Date: 20200713
  Serious: Yes (Other)
  Sender: FDA-Public Use
  Company Number: NVSC2020US094109

PATIENT
  Age: 4 Year
  Sex: Female

DRUGS (1)
  1. CARBOPLATIN. [Suspect]
     Active Substance: CARBOPLATIN
     Indication: GLIONEURONAL TUMOUR
     Route: 065

REACTIONS (3)
  - Product use in unapproved indication [Unknown]
  - Glioneuronal tumour [Unknown]
  - Malignant neoplasm progression [Unknown]
